FAERS Safety Report 5321077-5 (Version None)
Quarter: 2007Q2

REPORT INFORMATION
  Report Type: 
  Country: None (occurrence: None)
  Receive Date: 20070510
  Receipt Date: 20070508
  Transmission Date: 20071010
  Serious: Yes (Other)
  Sender: FDA-Public Use
  Company Number: US-BRISTOL-MYERS SQUIBB COMPANY-13772215

PATIENT
  Sex: Female
  Weight: 54 kg

DRUGS (18)
  1. COUMADIN [Suspect]
     Route: 048
     Dates: start: 19990101
  2. LOVASTATIN [Concomitant]
  3. METOPROLOL SUCCINATE [Concomitant]
  4. HYZAAR [Concomitant]
  5. DIGITEK [Concomitant]
  6. IRON [Concomitant]
  7. POTASSIUM ACETATE [Concomitant]
  8. OMEPRAZOLE [Concomitant]
  9. PREMARIN [Concomitant]
  10. LEVOTHYROXINE SODIUM [Concomitant]
  11. FOSAMAX [Concomitant]
  12. NAPROXEN [Concomitant]
  13. VITAMIN B COMPLEX CAP [Concomitant]
  14. MULTI-VITAMIN [Concomitant]
  15. GLUCOSAMINE [Concomitant]
  16. CHONDROITIN [Concomitant]
  17. MAGNESIUM SULFATE [Concomitant]
  18. CALCIUM + VITAMIN D [Concomitant]

REACTIONS (2)
  - CEREBELLAR ATROPHY [None]
  - CEREBRAL ATROPHY [None]
